FAERS Safety Report 19647499 (Version 2)
Quarter: 2021Q3

REPORT INFORMATION
  Report Type: Spontaneous
  Country: CN (occurrence: CN)
  Receive Date: 20210802
  Receipt Date: 20210817
  Transmission Date: 20211014
  Serious: Yes (Hospitalization)
  Sender: FDA-Public Use
  Company Number: CN-EXELA PHARMA SCIENCES, LLC-2021EXL00026

PATIENT
  Age: 39 Year
  Sex: Female

DRUGS (3)
  1. GANCICLOVIR. [Suspect]
     Active Substance: GANCICLOVIR
     Indication: NECROTISING RETINITIS
     Dosage: NINE ROUNDS OF 3 MG/0.1 ML INTO THE LEFT EYE, ONE INJECTION EVERY 2 WEEKS
     Dates: start: 20190604, end: 20190926
  2. SYSTEMIC ANTIVIRAL TREATMENT [Concomitant]
     Indication: NECROTISING RETINITIS
     Route: 065
  3. TRIAMCINOLONE ACETONIDE. [Concomitant]
     Active Substance: TRIAMCINOLONE ACETONIDE
     Dosage: 1 MG
     Dates: start: 20190619

REACTIONS (1)
  - Retinal toxicity [Unknown]

NARRATIVE: CASE EVENT DATE: 201906
